FAERS Safety Report 8458679-3 (Version None)
Quarter: 2012Q2

REPORT INFORMATION
  Report Type: 
  Country: None (occurrence: None)
  Receive Date: 20120622
  Receipt Date: 20120619
  Transmission Date: 20120825
  Serious: Yes (Hospitalization)
  Sender: FDA-Public Use
  Company Number: IN-EISAI INC-E2090-02175-SPO-IN

PATIENT
  Age: 43 Year
  Sex: Female

DRUGS (3)
  1. ZONISAMIDE [Suspect]
     Indication: EPILEPSY
     Route: 048
  2. OXCARBAZEPINE [Suspect]
     Indication: EPILEPSY
     Route: 048
  3. CLOBAZAM [Suspect]
     Indication: EPILEPSY
     Route: 048

REACTIONS (2)
  - PATHOLOGICAL FRACTURE [None]
  - BROWN TUMOUR [None]
